FAERS Safety Report 13077146 (Version 1)
Quarter: 2016Q4

REPORT INFORMATION
  Report Type: Spontaneous
  Country: US (occurrence: US)
  Receive Date: 20161230
  Receipt Date: 20161230
  Transmission Date: 20170207
  Serious: Yes (Other)
  Sender: FDA-Public Use
  Company Number: US-BAUSCH-BL-2016-032534

PATIENT
  Sex: Male

DRUGS (4)
  1. CUPRIMINE [Suspect]
     Active Substance: PENICILLAMINE
     Indication: CYSTINURIA
     Route: 048
     Dates: start: 1980
  2. GUANFACINE. [Concomitant]
     Active Substance: GUANFACINE
     Indication: HYPERTENSION
  3. POTASSIUM CITRATE. [Concomitant]
     Active Substance: POTASSIUM CITRATE
     Indication: PRODUCT USED FOR UNKNOWN INDICATION
  4. CUPRIMINE [Suspect]
     Active Substance: PENICILLAMINE
     Route: 048

REACTIONS (2)
  - Blister [Not Recovered/Not Resolved]
  - Nephrolithiasis [Unknown]
